FAERS Safety Report 25937919 (Version 1)
Quarter: 2025Q4

REPORT INFORMATION
  Report Type: Spontaneous
  Country: EU (occurrence: EU)
  Receive Date: 20251018
  Receipt Date: 20251018
  Transmission Date: 20260117
  Serious: Yes (Other)
  Sender: AUROBINDO
  Company Number: EU-AEMPS-1760432

PATIENT
  Age: 70 Year
  Sex: Female

DRUGS (4)
  1. DAPTOMYCIN [Interacting]
     Active Substance: DAPTOMYCIN
     Indication: Endocarditis
     Dosage: 550 MILLIGRAM, ONCE A DAY
     Route: 042
     Dates: start: 20250602, end: 20250613
  2. SIVEXTRO [Interacting]
     Active Substance: TEDIZOLID PHOSPHATE
     Indication: Endocarditis
     Dosage: 200 MILLIGRAM, ONCE A DAY
     Route: 048
     Dates: start: 20250613, end: 20250718
  3. ORITAVANCIN [Interacting]
     Active Substance: ORITAVANCIN
     Indication: Endocarditis
     Dosage: 1200 MILLIGRAM, ONCE A DAY
     Route: 042
     Dates: start: 20250613, end: 20250718
  4. CEFTAROLINE [Interacting]
     Active Substance: CEFTAROLINE
     Indication: Endocarditis
     Dosage: 1200 MILLIGRAM, ONCE A DAY
     Route: 042
     Dates: start: 20250602, end: 20250613

REACTIONS (1)
  - Dental caries [Recovered/Resolved with Sequelae]

NARRATIVE: CASE EVENT DATE: 20250710
